FAERS Safety Report 5410495-2 (Version None)
Quarter: 2007Q3

REPORT INFORMATION
  Report Type: 
  Country: None (occurrence: None)
  Receive Date: 20070810
  Receipt Date: 20070123
  Transmission Date: 20080115
  Serious: No
  Sender: FDA-Public Use
  Company Number: A0636716A

PATIENT
  Age: 53 Year
  Sex: Male

DRUGS (2)
  1. PAXIL [Suspect]
     Indication: CLAUSTROPHOBIA
     Route: 048
  2. LIPITOR [Concomitant]

REACTIONS (2)
  - DRUG WITHDRAWAL SYNDROME [None]
  - PANIC REACTION [None]
